FAERS Safety Report 25108225 (Version 5)
Quarter: 2025Q3

REPORT INFORMATION
  Report Type: Spontaneous
  Country: US (occurrence: US)
  Receive Date: 20250322
  Receipt Date: 20250821
  Transmission Date: 20251021
  Serious: No
  Sender: SANOFI AVENTIS
  Company Number: US-SA-2025SA082850

PATIENT
  Age: 39 Year
  Sex: Female

DRUGS (2)
  1. DUPIXENT [Suspect]
     Active Substance: DUPILUMAB
     Indication: Dermatitis atopic
     Route: 058
     Dates: start: 20250313, end: 20250313
  2. DUPIXENT [Suspect]
     Active Substance: DUPILUMAB
     Indication: Eczema
     Dosage: 300 MG, QOW
     Route: 058
     Dates: start: 202503, end: 2025

REACTIONS (20)
  - Dry mouth [Unknown]
  - Feeling abnormal [Unknown]
  - Lip dry [Not Recovered/Not Resolved]
  - Chapped lips [Not Recovered/Not Resolved]
  - Nasal congestion [Unknown]
  - Dyspnoea [Unknown]
  - Weight increased [Unknown]
  - Skin reaction [Unknown]
  - Influenza like illness [Unknown]
  - Chills [Unknown]
  - Pruritus [Unknown]
  - Oropharyngeal pain [Unknown]
  - Nasopharyngitis [Recovered/Resolved]
  - Eye pruritus [Recovered/Resolved]
  - Sneezing [Recovered/Resolved]
  - Pain [Recovered/Resolved]
  - Sinusitis [Unknown]
  - Injection site erythema [Recovered/Resolved]
  - Injection site bruising [Unknown]
  - Injection site pruritus [Recovered/Resolved]

NARRATIVE: CASE EVENT DATE: 20250101
